FAERS Safety Report 6789122-8 (Version None)
Quarter: 2010Q2

REPORT INFORMATION
  Report Type: 
  Country: None (occurrence: None)
  Receive Date: 20100623
  Receipt Date: 20080701
  Transmission Date: 20101027
  Serious: Yes (Other)
  Sender: FDA-Public Use
  Company Number: US-PFIZER INC-2008055293

PATIENT
  Sex: Female
  Weight: 77 kg

DRUGS (1)
  1. PROVERA [Suspect]
     Indication: UTERINE HAEMORRHAGE
     Route: 048
     Dates: start: 20071101, end: 20080601

REACTIONS (1)
  - RASH [None]
